FAERS Safety Report 4338834-4 (Version None)
Quarter: 2004Q2

REPORT INFORMATION
  Report Type: 
  Country: None (occurrence: None)
  Receive Date: 20040409
  Receipt Date: 20040323
  Transmission Date: 20050107
  Serious: Yes (Other)
  Sender: FDA-Public Use
  Company Number: PHNU2004DE01316

PATIENT
  Age: 75 Year
  Sex: Male

DRUGS (1)
  1. VISUDYNE [Suspect]
     Indication: MACULAR DEGENERATION
     Dates: start: 20030822, end: 20030822

REACTIONS (3)
  - CHOROIDAL NEOVASCULARISATION [None]
  - FIBROSIS [None]
  - RETINAL HAEMORRHAGE [None]
